FAERS Safety Report 19942577 (Version 3)
Quarter: 2022Q1

REPORT INFORMATION
  Report Type: Other
  Country: JP (occurrence: JP)
  Receive Date: 20211012
  Receipt Date: 20220207
  Transmission Date: 20220423
  Serious: Yes (Hospitalization)
  Sender: FDA-Public Use
  Company Number: JP-ROCHE-2926266

PATIENT
  Age: 53 Year
  Sex: Female

DRUGS (9)
  1. SATRALIZUMAB [Suspect]
     Active Substance: SATRALIZUMAB
     Indication: Prophylaxis
     Route: 058
     Dates: start: 20201105, end: 20201119
  2. SATRALIZUMAB [Suspect]
     Active Substance: SATRALIZUMAB
     Indication: Neuromyelitis optica spectrum disorder
     Route: 058
     Dates: start: 20201203, end: 20210505
  3. RITUXIMAB [Suspect]
     Active Substance: RITUXIMAB
     Indication: Prophylaxis
     Route: 041
  4. PREDONINE [Concomitant]
     Active Substance: PREDNISOLONE
     Indication: Neuromyelitis optica spectrum disorder
     Dosage: 10 MG/DAY
     Route: 048
     Dates: start: 20201105, end: 20201202
  5. PREDONINE [Concomitant]
     Active Substance: PREDNISOLONE
     Dosage: 7.5MG/DAY
     Route: 048
     Dates: start: 20201203, end: 20210103
  6. PREDONINE [Concomitant]
     Active Substance: PREDNISOLONE
     Dosage: 5MG/DAY
     Route: 048
     Dates: start: 20210104, end: 20210131
  7. PREDONINE [Concomitant]
     Active Substance: PREDNISOLONE
     Dosage: 2.5 MG/DAY
     Route: 048
     Dates: start: 20210201, end: 20210301
  8. AZATHIOPRINE [Concomitant]
     Active Substance: AZATHIOPRINE
  9. MITOXANTRONE HYDROCHLORIDE [Concomitant]
     Active Substance: MITOXANTRONE HYDROCHLORIDE

REACTIONS (2)
  - Cellulitis [Recovering/Resolving]
  - Off label use [Unknown]

NARRATIVE: CASE EVENT DATE: 20210527
